FAERS Safety Report 5455978-4 (Version None)
Quarter: 2007Q3

REPORT INFORMATION
  Report Type: 
  Country: None (occurrence: None)
  Receive Date: 20070918
  Receipt Date: 20070906
  Transmission Date: 20080115
  Serious: Yes (Other)
  Sender: FDA-Public Use
  Company Number: JP-ASTRAZENECA-2007AP04842

PATIENT
  Age: 71 Year
  Sex: Male

DRUGS (2)
  1. SEROQUEL [Suspect]
     Route: 048
     Dates: end: 20070704
  2. SELENICA R [Concomitant]
     Route: 048
     Dates: end: 20070704

REACTIONS (2)
  - MUSCULOSKELETAL STIFFNESS [None]
  - PNEUMONIA [None]
